FAERS Safety Report 25494550 (Version 1)
Quarter: 2025Q2

REPORT INFORMATION
  Report Type: Spontaneous
  Country: FI (occurrence: FI)
  Receive Date: 20250630
  Receipt Date: 20250630
  Transmission Date: 20250716
  Serious: Yes (Disabling)
  Sender: ORGANON
  Company Number: None

PATIENT
  Age: 24 Year
  Sex: Female

DRUGS (5)
  1. ELOCON [Suspect]
     Active Substance: MOMETASONE FUROATE
     Indication: Rash
     Route: 003
     Dates: start: 2017, end: 2019
  2. BETAMETHASONE VALERATE\FUSIDIC ACID [Suspect]
     Active Substance: BETAMETHASONE VALERATE\FUSIDIC ACID
     Indication: Rash
     Route: 003
     Dates: start: 201612, end: 2017
  3. LOCOID [Suspect]
     Active Substance: HYDROCORTISONE BUTYRATE
     Indication: Rash
     Dosage: AS NEEDED, TO THE SCALP
     Route: 003
     Dates: start: 2017, end: 2019
  4. BETAMETHASONE VALERATE [Suspect]
     Active Substance: BETAMETHASONE VALERATE
     Indication: Rash
     Route: 003
     Dates: start: 2017, end: 2019
  5. DESONIDE [Suspect]
     Active Substance: DESONIDE
     Indication: Rash
     Route: 003
     Dates: start: 2017, end: 2018

REACTIONS (3)
  - Steroid dependence [Recovered/Resolved]
  - Insomnia [Recovered/Resolved]
  - Hypersensitivity [Recovered/Resolved]

NARRATIVE: CASE EVENT DATE: 20170101
